FAERS Safety Report 25825413 (Version 1)
Quarter: 2025Q3

REPORT INFORMATION
  Report Type: Spontaneous
  Country: CA (occurrence: CA)
  Receive Date: 20250919
  Receipt Date: 20250919
  Transmission Date: 20251020
  Serious: Yes (Other)
  Sender: BAUSCH AND LOMB
  Company Number: CA-BAUSCH-BH-2025-017616

PATIENT
  Age: 35 Year
  Sex: Male

DRUGS (2)
  1. WELLBUTRIN XL [Suspect]
     Active Substance: BUPROPION HYDROCHLORIDE
     Indication: Schizophrenia
     Route: 065
  2. WELLBUTRIN XL [Suspect]
     Active Substance: BUPROPION HYDROCHLORIDE
     Indication: Product use in unapproved indication

REACTIONS (6)
  - Drug abuse [Unknown]
  - Unresponsive to stimuli [Unknown]
  - Psychotic disorder [Unknown]
  - Aggression [Unknown]
  - Product use in unapproved indication [Unknown]
  - Intentional product use issue [Unknown]
